FAERS Safety Report 6980283-4 (Version None)
Quarter: 2010Q3

REPORT INFORMATION
  Report Type: 
  Country: None (occurrence: None)
  Receive Date: 20100908
  Receipt Date: 20100827
  Transmission Date: 20110219
  Serious: Yes (Life-Threatening, Other)
  Sender: FDA-Public Use
  Company Number: TOR-2010-0035

PATIENT
  Age: 68 Year
  Sex: Female

DRUGS (1)
  1. FARESTON [Suspect]
     Indication: BREAST CANCER
     Dosage: 120 MG  ORAL
     Route: 048
     Dates: start: 20090217

REACTIONS (1)
  - DIZZINESS [None]
